FAERS Safety Report 5598198-5 (Version None)
Quarter: 2008Q1

REPORT INFORMATION
  Report Type: 
  Country: None (occurrence: None)
  Receive Date: 20080122
  Receipt Date: 20080114
  Transmission Date: 20080703
  Serious: Yes (Other)
  Sender: FDA-Public Use
  Company Number: GB-ALLERGAN-0800559US

PATIENT
  Sex: Female

DRUGS (2)
  1. DYSPORT [Suspect]
     Indication: SKIN WRINKLING
     Dosage: 260 UNITS, SINGLE
     Route: 030
     Dates: start: 20071108, end: 20071108
  2. HYALURONIC ACID [Suspect]
     Indication: DRUG USE FOR UNKNOWN INDICATION
     Dosage: 30 G, UNKNOWN

REACTIONS (4)
  - APPLICATION SITE ERYTHEMA [None]
  - HYPERSENSITIVITY [None]
  - SKIN DISCOLOURATION [None]
  - SKIN SWELLING [None]
